FAERS Safety Report 9566172 (Version 2)
Quarter: 2013Q4

REPORT INFORMATION
  Report Type: Spontaneous
  Country: US (occurrence: US)
  Receive Date: 20130930
  Receipt Date: 20131118
  Transmission Date: 20140711
  Serious: No
  Sender: FDA-Public Use
  Company Number: US-ASTRAZENECA-2013SE49916

PATIENT
  Age: 76 Year
  Sex: Female
  Weight: 71.2 kg

DRUGS (13)
  1. WELCHOL [Concomitant]
     Indication: BLOOD CHOLESTEROL INCREASED
  2. POTASSIUM [Concomitant]
  3. ISOSORBIDE [Concomitant]
  4. BESYLATE [Concomitant]
  5. HYDROCHLOROTHIAZIDE [Concomitant]
  6. ASPIRIN [Concomitant]
     Indication: STENT PLACEMENT
     Route: 048
     Dates: start: 20130523
  7. BRILINTA [Suspect]
     Indication: STENT PLACEMENT
     Route: 048
     Dates: start: 20130523
  8. NIASPAN [Suspect]
     Indication: CORONARY ARTERY OCCLUSION
     Route: 048
     Dates: start: 2011
  9. NIASPAN [Suspect]
     Indication: BLOOD CHOLESTEROL INCREASED
     Route: 048
     Dates: start: 2011
  10. NIASPAN [Suspect]
     Indication: CORONARY ARTERY OCCLUSION
     Route: 048
     Dates: start: 20130423, end: 20130523
  11. NIASPAN [Suspect]
     Indication: BLOOD CHOLESTEROL INCREASED
     Route: 048
     Dates: start: 20130423, end: 20130523
  12. ASA [Concomitant]
  13. FAMOTIDINE [Concomitant]
     Indication: FLATULENCE
     Dosage: DAILY

REACTIONS (5)
  - Myalgia [Recovered/Resolved]
  - Pruritus [Recovered/Resolved]
  - Dyspnoea [Recovered/Resolved]
  - Intentional drug misuse [Unknown]
  - Flushing [Unknown]
